FAERS Safety Report 8787809 (Version 2)
Quarter: 2015Q1

REPORT INFORMATION
  Report Type: Report from Study
  Country: US (occurrence: US)
  Receive Date: 20120914
  Receipt Date: 20150312
  Transmission Date: 20150721
  Serious: Yes (Death, Hospitalization)
  Sender: FDA-Public Use
  Company Number: US-ROCHE-1123761

PATIENT
  Age: 80 Year
  Sex: Female
  Weight: 51.8 kg

DRUGS (10)
  1. LASIX [Concomitant]
     Active Substance: FUROSEMIDE
  2. AVASTIN [Suspect]
     Active Substance: BEVACIZUMAB
     Indication: BREAST CANCER FEMALE
     Route: 042
     Dates: start: 20051201
  3. KEFLEX [Concomitant]
     Active Substance: CEPHALEXIN
  4. NITROQUICK [Concomitant]
     Active Substance: NITROGLYCERIN
     Route: 065
  5. ALOXI [Concomitant]
     Active Substance: PALONOSETRON HYDROCHLORIDE
     Route: 042
     Dates: start: 2005
  6. OXYCONTIN [Concomitant]
     Active Substance: OXYCODONE HYDROCHLORIDE
  7. DECADRON [Concomitant]
     Active Substance: DEXAMETHASONE
     Route: 042
  8. MITOMYCIN C [Concomitant]
     Active Substance: MITOMYCIN
     Route: 042
  9. ANTIVERT (UNITED STATES) [Concomitant]
  10. ALPHAGAN P [Concomitant]
     Active Substance: BRIMONIDINE TARTRATE

REACTIONS (12)
  - Death [Fatal]
  - Epistaxis [Unknown]
  - Bone pain [Unknown]
  - Balance disorder [Unknown]
  - Chest pain [Unknown]
  - Headache [Unknown]
  - Rash [Unknown]
  - Hypersensitivity [Unknown]
  - Off label use [Unknown]
  - Pain in extremity [Unknown]
  - Lymphadenopathy [Unknown]
  - Gastroenteritis [Unknown]

NARRATIVE: CASE EVENT DATE: 20060628
